FAERS Safety Report 10016821 (Version 6)
Quarter: 2014Q3

REPORT INFORMATION
  Report Type: Spontaneous
  Country: US (occurrence: US)
  Receive Date: 20140318
  Receipt Date: 20140717
  Transmission Date: 20150326
  Serious: Yes (Hospitalization, Other)
  Sender: FDA-Public Use
  Company Number: PHEH2008US011967

PATIENT
  Sex: Male

DRUGS (45)
  1. RENAGEL [Concomitant]
     Active Substance: SEVELAMER HYDROCHLORIDE
  2. LORTAB [Concomitant]
     Active Substance: ACETAMINOPHEN\HYDROCODONE BITARTRATE
     Route: 048
  3. AVANDIA [Concomitant]
     Active Substance: ROSIGLITAZONE MALEATE
  4. RENA-VITE [Concomitant]
     Active Substance: VITAMINS
     Route: 048
  5. THALIDOMIDE [Concomitant]
     Active Substance: THALIDOMIDE
  6. TOPROL XL [Concomitant]
     Active Substance: METOPROLOL SUCCINATE
  7. ZITHROMAX ^HEINRICH MACK^ [Concomitant]
  8. OXYCODONE/APAP [Concomitant]
     Active Substance: ACETAMINOPHEN\OXYCODONE HYDROCHLORIDE
     Route: 048
  9. CEFEPIME [Concomitant]
     Active Substance: CEFEPIME\CEFEPIME HYDROCHLORIDE
     Route: 048
  10. DURAGESIC [Concomitant]
     Active Substance: FENTANYL
  11. PRIMAXIN [Concomitant]
     Active Substance: CILASTATIN SODIUM\IMIPENEM
  12. VANCOMYCIN [Concomitant]
     Active Substance: VANCOMYCIN
  13. NEURONTIN [Concomitant]
     Active Substance: GABAPENTIN
     Route: 048
  14. CIPROFLOXACIN. [Concomitant]
     Active Substance: CIPROFLOXACIN
     Route: 048
  15. ACYCLOVIR. [Concomitant]
     Active Substance: ACYCLOVIR
  16. REMINYL [Concomitant]
     Active Substance: GALANTAMINE
     Dosage: 800 MG, BID
  17. ZOFRAN [Concomitant]
     Active Substance: ONDANSETRON HYDROCHLORIDE
  18. EPOGEN [Concomitant]
     Active Substance: ERYTHROPOIETIN
  19. VITAMIN C [Concomitant]
     Active Substance: ASCORBIC ACID
  20. DEXAMETHASONE. [Concomitant]
     Active Substance: DEXAMETHASONE
  21. VELCADE [Concomitant]
     Active Substance: BORTEZOMIB
  22. ALOXI [Concomitant]
     Active Substance: PALONOSETRON HYDROCHLORIDE
  23. DILAUDID [Concomitant]
     Active Substance: HYDROMORPHONE HYDROCHLORIDE
     Dosage: 4 MG, PRN
  24. SENSIPAR [Concomitant]
     Active Substance: CINACALCET HYDROCHLORIDE
  25. MULTIVITAMIN ^LAPPE^ [Concomitant]
     Active Substance: VITAMINS
  26. AMOXICILLIN. [Concomitant]
     Active Substance: AMOXICILLIN
     Dosage: 500 MG, QD
     Route: 048
  27. NORVASC [Concomitant]
     Active Substance: AMLODIPINE BESYLATE
     Dosage: 5 MG, QD
     Route: 048
  28. PROCRIT [Concomitant]
     Active Substance: ERYTHROPOIETIN
  29. AMBIEN [Concomitant]
     Active Substance: ZOLPIDEM TARTRATE
  30. PERCOCET [Concomitant]
     Active Substance: ACETAMINOPHEN\OXYCODONE HYDROCHLORIDE
  31. TORADOL [Concomitant]
     Active Substance: KETOROLAC TROMETHAMINE
     Dosage: 30 MG, UNK
  32. ZOMETA [Suspect]
     Active Substance: ZOLEDRONIC ACID
     Dosage: 2 MG, UNK
     Dates: start: 20050126, end: 20050518
  33. DIFLUCAN [Concomitant]
     Active Substance: FLUCONAZOLE
  34. ROCEPHIN [Concomitant]
     Active Substance: CEFTRIAXONE SODIUM
  35. COMPAZINE [Concomitant]
     Active Substance: PROCHLORPERAZINE MALEATE
  36. OXYCONTIN [Concomitant]
     Active Substance: OXYCODONE HYDROCHLORIDE
  37. VINCRISTINE [Concomitant]
     Active Substance: VINCRISTINE
     Indication: PLASMA CELL MYELOMA
  38. AREDIA [Suspect]
     Active Substance: PAMIDRONATE DISODIUM
     Dosage: 90 MG, UNK
     Route: 041
     Dates: start: 2000, end: 200410
  39. VITAMIN E [Concomitant]
     Active Substance: .ALPHA.-TOCOPHEROL
  40. PRILOSEC [Concomitant]
     Active Substance: OMEPRAZOLE MAGNESIUM
  41. LEVAQUIN [Concomitant]
     Active Substance: LEVOFLOXACIN
  42. MAGNESIUM OXIDE. [Concomitant]
     Active Substance: MAGNESIUM OXIDE
  43. ANZEMET [Concomitant]
     Active Substance: DOLASETRON MESYLATE
  44. KENALOG [Concomitant]
     Active Substance: TRIAMCINOLONE ACETONIDE
     Route: 048
  45. LUNESTA [Concomitant]
     Active Substance: ESZOPICLONE
     Dosage: 3 MG, UNK
     Route: 048

REACTIONS (200)
  - Atrial fibrillation [Unknown]
  - Rib fracture [Unknown]
  - Neuropathy peripheral [Unknown]
  - Shoulder deformity [Unknown]
  - Intervertebral disc protrusion [Unknown]
  - Chest pain [Unknown]
  - Metastases to bone [Unknown]
  - Osteomyelitis [Unknown]
  - Nausea [Unknown]
  - Hepatosplenomegaly [Unknown]
  - Diverticulitis [Unknown]
  - Hypothyroidism [Unknown]
  - Peritonitis [Unknown]
  - Mitral valve incompetence [Unknown]
  - Upper respiratory tract infection [Unknown]
  - Cardiac failure congestive [Unknown]
  - Renal atrophy [Unknown]
  - Haemorrhage intracranial [Unknown]
  - Shock [Unknown]
  - Paraesthesia [Unknown]
  - Vertebral osteophyte [Unknown]
  - Kyphosis [Unknown]
  - Ventricular hypokinesia [Unknown]
  - Syncope [Unknown]
  - Lung infiltration [Unknown]
  - Spinal compression fracture [Unknown]
  - Toothache [Unknown]
  - Limb injury [Unknown]
  - Osteitis [Unknown]
  - Thrombocytopenia [Unknown]
  - Back pain [Unknown]
  - Osteopenia [Unknown]
  - Tooth impacted [Unknown]
  - Dizziness [Unknown]
  - Tricuspid valve incompetence [Unknown]
  - Pulmonary valve incompetence [Unknown]
  - Oral infection [Unknown]
  - Myositis [Unknown]
  - Interstitial lung disease [Unknown]
  - Pulmonary congestion [Unknown]
  - Lung consolidation [Unknown]
  - Limb discomfort [Unknown]
  - Trigger finger [Unknown]
  - Device occlusion [Unknown]
  - Generalised oedema [Unknown]
  - Fistula [Unknown]
  - Ecchymosis [Unknown]
  - Hepatic failure [Unknown]
  - Exposed bone in jaw [Unknown]
  - Bone loss [Unknown]
  - Bradycardia [Unknown]
  - Infection [Unknown]
  - Anaemia [Unknown]
  - Hyperparathyroidism [Unknown]
  - Device related sepsis [Unknown]
  - General physical health deterioration [Unknown]
  - Herpes zoster [Unknown]
  - Carpal tunnel syndrome [Unknown]
  - Hyperkalaemia [Unknown]
  - Plasma cell myeloma recurrent [Unknown]
  - Oesophagitis [Unknown]
  - Myopathy [Unknown]
  - Electrocardiogram QRS complex prolonged [Unknown]
  - Atypical femur fracture [Unknown]
  - Osteonecrosis [Unknown]
  - Intervertebral disc degeneration [Unknown]
  - Ligament disorder [Unknown]
  - Swelling [Unknown]
  - Sinusitis [Unknown]
  - Costochondritis [Unknown]
  - Mental status changes [Unknown]
  - Musculoskeletal pain [Unknown]
  - Upper airway resistance syndrome [Unknown]
  - Atrial flutter [Unknown]
  - Bone lesion [Unknown]
  - Immunosuppression [Unknown]
  - Post herpetic neuralgia [Unknown]
  - Skin lesion [Unknown]
  - Physical disability [Unknown]
  - Oedema peripheral [Unknown]
  - Lumbosacral plexus lesion [Unknown]
  - Radiation neuropathy [Unknown]
  - Cardiomyopathy [Unknown]
  - Calcinosis [Unknown]
  - Joint effusion [Unknown]
  - Joint range of motion decreased [Unknown]
  - Lacunar infarction [Unknown]
  - Cardiomegaly [Unknown]
  - Hypotension [Unknown]
  - Lumbar vertebral fracture [Unknown]
  - Body fat disorder [Unknown]
  - Deformity thorax [Unknown]
  - Sinus tachycardia [Unknown]
  - Pancytopenia [Unknown]
  - Pain [Unknown]
  - Emotional distress [Unknown]
  - Hypertension [Unknown]
  - Gingivitis [Unknown]
  - Radiation injury [Unknown]
  - Hypertensive heart disease [Unknown]
  - Gastrooesophageal reflux disease [Unknown]
  - Hypertrophy [Unknown]
  - Tendon disorder [Unknown]
  - Thoracic vertebral fracture [Unknown]
  - Aneurysm [Unknown]
  - Arteriosclerosis [Unknown]
  - Hypoglycaemia [Unknown]
  - Osteolysis [Unknown]
  - Synovitis [Unknown]
  - Arteriosclerosis coronary artery [Unknown]
  - Arthritis [Unknown]
  - Febrile neutropenia [Unknown]
  - Spinal fracture [Unknown]
  - Osteonecrosis of jaw [Unknown]
  - Injury [Unknown]
  - Anxiety [Unknown]
  - Renal failure acute [Unknown]
  - Hypercalcaemia [Unknown]
  - Dysuria [Unknown]
  - Acidosis [Unknown]
  - Pelvic fracture [Unknown]
  - Hyperphosphataemia [Unknown]
  - Osteoporosis [Unknown]
  - Intercostal neuralgia [Unknown]
  - Myofascial pain syndrome [Unknown]
  - Spinal osteoarthritis [Unknown]
  - Hydronephrosis [Unknown]
  - Bone marrow failure [Unknown]
  - Hiatus hernia [Unknown]
  - Ventricular extrasystoles [Unknown]
  - Left ventricular hypertrophy [Unknown]
  - Right ventricular dysfunction [Unknown]
  - Erectile dysfunction [Unknown]
  - Renal cyst [Unknown]
  - Haematochezia [Unknown]
  - Ascites [Unknown]
  - Intervertebral disc space narrowing [Unknown]
  - Arthropathy [Unknown]
  - Arrhythmia supraventricular [Unknown]
  - Dilatation ventricular [Unknown]
  - Micturition urgency [Unknown]
  - Periodontitis [Unknown]
  - Restless legs syndrome [Unknown]
  - Hyperthyroidism [Unknown]
  - Enthesopathy [Unknown]
  - Asthenia [Unknown]
  - Scar [Unknown]
  - Renal failure chronic [Unknown]
  - Osteoarthritis [Unknown]
  - Impaired healing [Unknown]
  - Muscular weakness [Unknown]
  - Gingival abscess [Unknown]
  - Pyrexia [Unknown]
  - Pericarditis [Unknown]
  - Gastritis erosive [Unknown]
  - Ventricular hypertrophy [Unknown]
  - Left atrial dilatation [Unknown]
  - Right atrial dilatation [Unknown]
  - Pathological fracture [Unknown]
  - Optic ischaemic neuropathy [Unknown]
  - Hip fracture [Unknown]
  - Ejection fraction decreased [Unknown]
  - Chronic obstructive pulmonary disease [Unknown]
  - Bursitis [Unknown]
  - Aortic disorder [Unknown]
  - Sleep apnoea syndrome [Unknown]
  - Urticaria [Unknown]
  - Aortic valve incompetence [Unknown]
  - Coronary artery disease [Unknown]
  - Respiratory distress [Unknown]
  - Atrioventricular block [Unknown]
  - Gallbladder disorder [Unknown]
  - Scrotal disorder [Unknown]
  - Proteinuria [Unknown]
  - Loose tooth [Unknown]
  - Cor pulmonale chronic [Unknown]
  - Peripheral venous disease [Unknown]
  - Retinal artery occlusion [Unknown]
  - Bundle branch block right [Unknown]
  - Intervertebral disc compression [Unknown]
  - Headache [Unknown]
  - Nephrolithiasis [Unknown]
  - Dental caries [Unknown]
  - Pneumonia [Unknown]
  - Dyspnoea [Unknown]
  - Metastases to liver [Unknown]
  - Disseminated intravascular coagulation [Unknown]
  - Pneumonitis [Unknown]
  - Myocardial infarction [Unknown]
  - Pulmonary hypertension [Unknown]
  - Fall [Unknown]
  - Pleural effusion [Unknown]
  - Purulent discharge [Unknown]
  - Subdural haematoma [Unknown]
  - Rotator cuff syndrome [Unknown]
  - Hepatic lesion [Unknown]
  - Congenital cystic kidney disease [Unknown]
  - Wound [Unknown]
  - Nephrosclerosis [Unknown]
  - Palpitations [Unknown]
